FAERS Safety Report 7183155-8 (Version None)
Quarter: 2010Q4

REPORT INFORMATION
  Report Type: 
  Country: None (occurrence: None)
  Receive Date: 20101222
  Receipt Date: 20100211
  Transmission Date: 20110411
  Serious: No
  Sender: FDA-Public Use
  Company Number: US-PFIZER INC-2010019150

PATIENT
  Sex: Female

DRUGS (2)
  1. HALCION [Suspect]
     Dosage: UNK
  2. ZOLPIDEM TARTRATE [Suspect]
     Dosage: UNK

REACTIONS (1)
  - ALTERED STATE OF CONSCIOUSNESS [None]
